FAERS Safety Report 18334717 (Version 1)
Quarter: 2020Q3

REPORT INFORMATION
  Report Type: Spontaneous
  Country: US (occurrence: US)
  Receive Date: 20200930
  Receipt Date: 20200930
  Transmission Date: 20201103
  Serious: Yes (Hospitalization)
  Sender: FDA-Public Use
  Company Number: None

PATIENT
  Age: 63 Year
  Sex: Female

DRUGS (17)
  1. FEBUXOSTAT. [Concomitant]
     Active Substance: FEBUXOSTAT
  2. GLIPIZIDE. [Concomitant]
     Active Substance: GLIPIZIDE
  3. PANTOPRAZOLE [Concomitant]
     Active Substance: PANTOPRAZOLE
  4. DILTIAZEM. [Concomitant]
     Active Substance: DILTIAZEM
  5. MYRBETRIQ [Concomitant]
     Active Substance: MIRABEGRON
  6. BYSTOLIC [Concomitant]
     Active Substance: NEBIVOLOL HYDROCHLORIDE
  7. FUROSEMIDE. [Concomitant]
     Active Substance: FUROSEMIDE
  8. METFORMIN [Concomitant]
     Active Substance: METFORMIN HYDROCHLORIDE
  9. ACYCLOVIR. [Concomitant]
     Active Substance: ACYCLOVIR
  10. LEVOFLOXACIN. [Concomitant]
     Active Substance: LEVOFLOXACIN
  11. PAROXETINE. [Concomitant]
     Active Substance: PAROXETINE
  12. REBIF [Suspect]
     Active Substance: INTERFERON BETA-1A
     Indication: MULTIPLE SCLEROSIS
     Route: 058
     Dates: start: 20190119
  13. POT CHLORIDE [Concomitant]
     Active Substance: POTASSIUM CHLORIDE
  14. REVLIMID [Concomitant]
     Active Substance: LENALIDOMIDE
  15. BUSPIRONE [Concomitant]
     Active Substance: BUSPIRONE HYDROCHLORIDE
  16. ROSUVSTATIN [Concomitant]
  17. IRBESART [Concomitant]

REACTIONS (1)
  - Stem cell transplant [None]

NARRATIVE: CASE EVENT DATE: 202007
